FAERS Safety Report 6452960-5 (Version None)
Quarter: 2009Q4

REPORT INFORMATION
  Report Type: 
  Country: None (occurrence: None)
  Receive Date: 20091124
  Receipt Date: 20091112
  Transmission Date: 20100525
  Serious: Yes (Other)
  Sender: FDA-Public Use
  Company Number: AU-PFIZER INC-2009298292

PATIENT
  Age: 53 Year
  Sex: Male

DRUGS (7)
  1. NELFINAVIR MESILATE [Suspect]
  2. LAMIVUDINE [Suspect]
  3. ATAZANAVIR [Suspect]
  4. EMTRICITABINE [Suspect]
  5. NEVIRAPINE [Suspect]
  6. STOCRIN [Suspect]
  7. DIDANOSINE [Suspect]

REACTIONS (1)
  - PARKINSONISM [None]
